FAERS Safety Report 21475000 (Version 1)
Quarter: 2022Q4

REPORT INFORMATION
  Report Type: Spontaneous
  Country: US (occurrence: US)
  Receive Date: 20221019
  Receipt Date: 20221019
  Transmission Date: 20230113
  Serious: No
  Sender: FDA-Public Use
  Company Number: US-BRISTOL-MYERS SQUIBB COMPANY-2022-119589

PATIENT
  Age: 55 Year
  Sex: Male

DRUGS (2)
  1. ONUREG [Suspect]
     Active Substance: AZACITIDINE
     Indication: Acute myeloid leukaemia
     Dosage: FREQ: 200MG DAYS 1-5 OF 28DAY CYCLE
     Route: 048
  2. ONUREG [Suspect]
     Active Substance: AZACITIDINE
     Indication: Stem cell transplant

REACTIONS (1)
  - Off label use [Unknown]
